FAERS Safety Report 23014980 (Version 1)
Quarter: 2023Q4

REPORT INFORMATION
  Report Type: Report from Study
  Country: IN (occurrence: IN)
  Receive Date: 20231002
  Receipt Date: 20231002
  Transmission Date: 20240110
  Serious: Yes (Other)
  Sender: FDA-Public Use
  Company Number: IN-002147023-NVSC2023IN208115

PATIENT
  Age: 15 Year
  Sex: Female

DRUGS (2)
  1. CERTICAN [Suspect]
     Active Substance: EVEROLIMUS
     Indication: Renal transplant
     Dosage: 0.25 MG, BID
     Route: 048
     Dates: start: 20230309, end: 20230405
  2. CERTICAN [Suspect]
     Active Substance: EVEROLIMUS
     Dosage: UNK, OTHER (0.25+0.5MG-IN MORNING - 0.25 + 0.5MG IN EVENING)
     Route: 048
     Dates: start: 20230406, end: 20230601

REACTIONS (6)
  - Thrombocytopenia [Recovering/Resolving]
  - Blood creatinine increased [Recovering/Resolving]
  - Blood urea increased [Recovering/Resolving]
  - Haemoglobin decreased [Recovering/Resolving]
  - White blood cell count decreased [Recovering/Resolving]
  - Red blood cell count decreased [Recovering/Resolving]

NARRATIVE: CASE EVENT DATE: 20230526
